FAERS Safety Report 8421078-4 (Version None)
Quarter: 2012Q2

REPORT INFORMATION
  Report Type: 
  Country: None (occurrence: None)
  Receive Date: 20120323
  Receipt Date: 20111208
  Transmission Date: 20120825
  Serious: Yes (Other)
  Sender: FDA-Public Use
  Company Number: 163-21880-11121237

PATIENT
  Age: 62 Year
  Sex: Female
  Weight: 74.8435 kg

DRUGS (7)
  1. PRAVASTATIN [Concomitant]
  2. ASPIRIN [Concomitant]
  3. ZOMETA [Concomitant]
  4. HYDROCHLOROTHIAZIDE [Concomitant]
  5. REVLIMID [Suspect]
     Indication: MULTIPLE MYELOMA
     Dosage: 10 MG, 14/7, PO ; 10 MG, 21/7, PO
     Route: 048
     Dates: start: 20111112
  6. REVLIMID [Suspect]
     Indication: MULTIPLE MYELOMA
     Dosage: 10 MG, 14/7, PO ; 10 MG, 21/7, PO
     Route: 048
     Dates: start: 20110718
  7. AVAPRO [Concomitant]

REACTIONS (1)
  - RASH [None]
